FAERS Safety Report 4416254-1 (Version None)
Quarter: 2004Q3

REPORT INFORMATION
  Report Type: 
  Country: None (occurrence: None)
  Receive Date: 20040804
  Receipt Date: 20040804
  Transmission Date: 20050211
  Serious: Yes (Hospitalization)
  Sender: FDA-Public Use
  Company Number: None

PATIENT
  Age: 35 Year
  Sex: Female

DRUGS (1)
  1. ONDANSETRON [Suspect]
     Indication: VOMITING
     Dosage: 8 MG IV Q 6 H 1 DOSE
     Route: 042
     Dates: start: 20030719, end: 20030719

REACTIONS (3)
  - ANGIONEUROTIC OEDEMA [None]
  - DRUG EXPOSURE DURING PREGNANCY [None]
  - TONGUE OEDEMA [None]
